FAERS Safety Report 5788315-6 (Version None)
Quarter: 2008Q2

REPORT INFORMATION
  Report Type: 
  Country: None (occurrence: None)
  Receive Date: 20080623
  Receipt Date: 20080616
  Transmission Date: 20081010
  Serious: Yes (Other)
  Sender: FDA-Public Use
  Company Number: CHPA2008US10060

PATIENT
  Sex: Female

DRUGS (1)
  1. THERAFLU AND SORE THROAT  (PARACETAMOL, DIPHENHYDRAMINE, PHENYLEPHRINE [Suspect]
     Dosage: ORAL
     Route: 048
     Dates: start: 20080613, end: 20080613

REACTIONS (1)
  - CONVULSION [None]
